FAERS Safety Report 24820645 (Version 3)
Quarter: 2025Q1

REPORT INFORMATION
  Report Type: Spontaneous
  Country: US (occurrence: US)
  Receive Date: 20250108
  Receipt Date: 20250129
  Transmission Date: 20250409
  Serious: No
  Sender: BAUSCH AND LOMB
  Company Number: US-BAUSCHBL-2025BNL000076

PATIENT
  Age: 67 Year
  Sex: Male
  Weight: 81.6 kg

DRUGS (1)
  1. MIEBO [Suspect]
     Active Substance: PERFLUOROHEXYLOCTANE
     Indication: Dry eye
     Route: 065
     Dates: start: 20241224, end: 20241230

REACTIONS (10)
  - Eyelid margin crusting [Unknown]
  - Product complaint [Unknown]
  - Product delivery mechanism issue [Unknown]
  - Circumstance or information capable of leading to medication error [Unknown]
  - Product packaging quantity issue [Unknown]
  - Accidental exposure to product [Unknown]
  - Exposure via skin contact [Unknown]
  - Wrong technique in product usage process [Unknown]
  - Product use complaint [Unknown]
  - Product container issue [Unknown]

NARRATIVE: CASE EVENT DATE: 20241201
